FAERS Safety Report 4334955-0 (Version None)
Quarter: 2004Q2

REPORT INFORMATION
  Report Type: 
  Country: None (occurrence: None)
  Receive Date: 20040405
  Receipt Date: 20040319
  Transmission Date: 20050107
  Serious: Yes (Other)
  Sender: FDA-Public Use
  Company Number: DSA_60372_2003

PATIENT
  Age: 48 Year
  Sex: Female

DRUGS (1)
  1. TONOPAN [Suspect]
     Indication: MIGRAINE
     Dosage: 1 TAB PRN PO
     Route: 048
     Dates: start: 20030315, end: 20031109

REACTIONS (4)
  - ARTHRALGIA [None]
  - HEART RATE INCREASED [None]
  - HYPOAESTHESIA [None]
  - PAIN IN EXTREMITY [None]
